FAERS Safety Report 14685788 (Version 6)
Quarter: 2021Q1

REPORT INFORMATION
  Report Type: Spontaneous
  Country: US (occurrence: US)
  Receive Date: 20180327
  Receipt Date: 20210326
  Transmission Date: 20210419
  Serious: Yes (Other)
  Sender: FDA-Public Use
  Company Number: US-PFIZER INC-2018125749

PATIENT
  Age: 60 Year
  Sex: Female

DRUGS (159)
  1. PREVACID [Suspect]
     Active Substance: LANSOPRAZOLE
     Dosage: 30 MG, UNK
     Dates: start: 20030427
  2. PREVACID [Suspect]
     Active Substance: LANSOPRAZOLE
     Dosage: 30 MG, UNK
     Route: 048
     Dates: start: 20031115
  3. OMEPRAZOLE. [Suspect]
     Active Substance: OMEPRAZOLE
     Dosage: 20 MG, UNK
     Dates: start: 20150812
  4. ZANTAC 75 (OTC) [Concomitant]
     Dosage: UNK
     Dates: start: 1983, end: 1986
  5. METOPROLOL. [Concomitant]
     Active Substance: METOPROLOL
     Indication: HEART RATE ABNORMAL
     Dosage: UNK
     Dates: start: 2014
  6. CARDIZEM CD [Concomitant]
     Active Substance: DILTIAZEM HYDROCHLORIDE
  7. CYCLOBENZAPRINE. [Concomitant]
     Active Substance: CYCLOBENZAPRINE
     Dosage: UNK
     Dates: start: 2001, end: 2012
  8. FLUNISOLIDE. [Concomitant]
     Active Substance: FLUNISOLIDE
     Indication: ASTHMA
     Dosage: UNK
     Dates: start: 2012, end: 2014
  9. POTASSIUM CHLORIDE. [Concomitant]
     Active Substance: POTASSIUM CHLORIDE
     Dosage: UNK
     Dates: start: 2015
  10. KLOR?CON [Concomitant]
     Active Substance: POTASSIUM CHLORIDE
     Dosage: UNK
     Dates: start: 20110816
  11. ACTONEL [Concomitant]
     Active Substance: RISEDRONATE SODIUM
     Indication: BONE DISORDER
     Dosage: UNK
     Dates: start: 2001, end: 2002
  12. GFN/DM [Concomitant]
     Dosage: UNK
     Dates: start: 2006
  13. LUNESTA [Concomitant]
     Active Substance: ESZOPICLONE
     Indication: INSOMNIA
     Dosage: UNK
     Dates: start: 2006
  14. ALLOPURINOL. [Concomitant]
     Active Substance: ALLOPURINOL
     Indication: BLOOD URIC ACID INCREASED
     Dosage: UNK
     Dates: start: 2006
  15. CEPHALEXIN. [Concomitant]
     Active Substance: CEPHALEXIN
     Indication: ANTIBIOTIC THERAPY
     Dosage: UNK
     Dates: start: 2011
  16. LISINOPRIL. [Concomitant]
     Active Substance: LISINOPRIL
     Dosage: UNK
  17. PREVACID [Suspect]
     Active Substance: LANSOPRAZOLE
     Dosage: 30 MG, UNK
     Route: 048
     Dates: start: 20030608
  18. PREVACID [Suspect]
     Active Substance: LANSOPRAZOLE
     Dosage: 30 MG, UNK
     Route: 048
     Dates: start: 20040203
  19. PRILOSEC [Suspect]
     Active Substance: OMEPRAZOLE MAGNESIUM
     Indication: GASTROOESOPHAGEAL REFLUX DISEASE
     Dosage: 1 DF, DAILY
     Route: 048
     Dates: start: 2011, end: 2016
  20. PRILOSEC [Suspect]
     Active Substance: OMEPRAZOLE MAGNESIUM
     Dosage: 20 MG, UNK
     Route: 048
     Dates: start: 20190508
  21. OMEPRAZOLE. [Suspect]
     Active Substance: OMEPRAZOLE
     Dosage: 20 MG, UNK
     Dates: start: 20120201
  22. OMEPRAZOLE. [Suspect]
     Active Substance: OMEPRAZOLE
     Dosage: 20 MG, UNK
     Route: 048
     Dates: start: 20120321
  23. OMEPRAZOLE. [Suspect]
     Active Substance: OMEPRAZOLE
     Dosage: 20 MG, UNK
     Route: 048
     Dates: start: 20140617
  24. OMEPRAZOLE. [Suspect]
     Active Substance: OMEPRAZOLE
     Dosage: 20 MG, UNK
     Route: 048
     Dates: start: 20141119
  25. OMEPRAZOLE. [Suspect]
     Active Substance: OMEPRAZOLE
     Dosage: 20 MG, UNK
     Route: 048
     Dates: start: 20150506
  26. OMEPRAZOLE. [Suspect]
     Active Substance: OMEPRAZOLE
     Dosage: GENERIC 20.0MG UNKNOWN
     Route: 048
     Dates: start: 20110816
  27. METOPROLOL. [Concomitant]
     Active Substance: METOPROLOL
     Indication: BLOOD PRESSURE ABNORMAL
     Dosage: UNK
     Dates: start: 2013, end: 2016
  28. LOPRESSOR [Concomitant]
     Active Substance: METOPROLOL TARTRATE
  29. FLUTICASONE. [Concomitant]
     Active Substance: FLUTICASONE
     Indication: STEROID THERAPY
     Dosage: UNK
     Dates: start: 2010, end: 2012
  30. FUROSEMIDE. [Concomitant]
     Active Substance: FUROSEMIDE
     Indication: DIURETIC THERAPY
     Dosage: UNK
     Dates: start: 2012, end: 2014
  31. TRIAMTERENE HCTZ [Concomitant]
     Active Substance: HYDROCHLOROTHIAZIDE\TRIAMTERENE
     Indication: DIURETIC THERAPY
     Dosage: UNK
     Dates: start: 1999, end: 2013
  32. ERYCETTE [Concomitant]
     Active Substance: ERYTHROMYCIN
     Indication: ANTIBIOTIC THERAPY
     Dosage: UNK
     Dates: start: 1991
  33. ALTACE [Concomitant]
     Active Substance: RAMIPRIL
     Dosage: UNK
     Dates: start: 2000
  34. PARACETAMOL;PROPOXYPHENE [Concomitant]
     Indication: PAIN
     Dosage: UNK
     Dates: start: 2005
  35. COLCHICINE. [Concomitant]
     Active Substance: COLCHICINE
     Indication: INFLAMMATION
     Dosage: UNK
     Dates: start: 2006
  36. METHYLPREDNISOLONE. [Concomitant]
     Active Substance: METHYLPREDNISOLONE
     Indication: STEROID THERAPY
     Dosage: UNK
     Dates: start: 2006
  37. METHYLPREDNISOLONE. [Concomitant]
     Active Substance: METHYLPREDNISOLONE
     Dosage: UNK
     Dates: start: 2010
  38. ALLOPURINOL. [Concomitant]
     Active Substance: ALLOPURINOL
     Dosage: UNK
     Dates: start: 2009
  39. TRAZODONE [Concomitant]
     Active Substance: TRAZODONE HYDROCHLORIDE
     Dosage: UNK
  40. NIFEDIPINE. [Concomitant]
     Active Substance: NIFEDIPINE
     Dosage: UNK
  41. FEBUXOSTAT. [Concomitant]
     Active Substance: FEBUXOSTAT
     Dosage: UNK
  42. PREVACID [Suspect]
     Active Substance: LANSOPRAZOLE
     Dosage: 30 MG, UNK
     Route: 048
     Dates: start: 20030424
  43. PROTONIX [Suspect]
     Active Substance: PANTOPRAZOLE SODIUM
     Dosage: 40 MG, UNK
     Dates: start: 20060209
  44. OMEPRAZOLE. [Suspect]
     Active Substance: OMEPRAZOLE
     Dosage: 20 MG, UNK
     Route: 048
     Dates: start: 20100614
  45. OMEPRAZOLE. [Suspect]
     Active Substance: OMEPRAZOLE
     Dosage: 20 MG, UNK
     Route: 048
     Dates: start: 20121218
  46. OMEPRAZOLE. [Suspect]
     Active Substance: OMEPRAZOLE
     Dosage: 20 MG, UNK
     Dates: start: 20151218
  47. ALEVE [Concomitant]
     Active Substance: NAPROXEN SODIUM
     Dosage: UNK, AS NEEDED
  48. LIPITOR [Concomitant]
     Active Substance: ATORVASTATIN CALCIUM
     Indication: BLOOD TRIGLYCERIDES INCREASED
     Dosage: UNK, FOR 20 YEARS
  49. LIPITOR [Concomitant]
     Active Substance: ATORVASTATIN CALCIUM
     Dosage: UNK
     Dates: start: 2001, end: 2008
  50. ATENOLOL. [Concomitant]
     Active Substance: ATENOLOL
     Indication: HYPERTENSION
     Dosage: UNK
     Dates: start: 1999, end: 2013
  51. PEPCID AC [Concomitant]
     Active Substance: FAMOTIDINE
     Dosage: UNK
  52. CYCLOBENZAPRINE. [Concomitant]
     Active Substance: CYCLOBENZAPRINE
     Indication: PAIN
     Dosage: UNK
     Dates: start: 1999
  53. HYDROCODONE/PARACETAMOL [Concomitant]
     Active Substance: ACETAMINOPHEN\HYDROCODONE BITARTRATE
     Indication: PAIN
     Dosage: UNK
     Dates: start: 2001
  54. NULYTELY [Concomitant]
     Active Substance: POLYETHYLENE GLYCOL 3350\POTASSIUM CHLORIDE\SODIUM BICARBONATE\SODIUM CHLORIDE
     Indication: ABDOMINAL DISCOMFORT
     Dosage: UNK
     Dates: start: 2003
  55. ZITHROMAX [Concomitant]
     Active Substance: AZITHROMYCIN DIHYDRATE
     Indication: ANTIBIOTIC THERAPY
     Dosage: UNK
     Dates: start: 2004
  56. CHERATUSSIN [Concomitant]
     Active Substance: AMMONIUM CHLORIDE\DEXTROMETHORPHAN\SODIUM CITRATE
     Indication: NASOPHARYNGITIS
     Dosage: UNK
     Dates: start: 2007
  57. PREVACID [Suspect]
     Active Substance: LANSOPRAZOLE
     Dosage: 30 MG, UNK
     Route: 048
     Dates: start: 20040524
  58. PREVACID [Suspect]
     Active Substance: LANSOPRAZOLE
     Dosage: 30 MG, UNK
     Route: 048
     Dates: start: 20070922
  59. PREVACID [Suspect]
     Active Substance: LANSOPRAZOLE
     Dosage: 30 MG, UNK
     Route: 048
     Dates: start: 20071210
  60. NEXIUM 24HR [Suspect]
     Active Substance: ESOMEPRAZOLE MAGNESIUM
     Dosage: 1 DF, DAILY
  61. OMEPRAZOLE. [Suspect]
     Active Substance: OMEPRAZOLE
     Dosage: 20 MG, UNK
     Route: 048
     Dates: start: 20120113
  62. OMEPRAZOLE. [Suspect]
     Active Substance: OMEPRAZOLE
     Dosage: 20 MG, UNK
     Route: 048
     Dates: start: 20120312
  63. OMEPRAZOLE. [Suspect]
     Active Substance: OMEPRAZOLE
     Dosage: 20 MG, UNK
     Route: 048
     Dates: start: 20120629
  64. OMEPRAZOLE. [Suspect]
     Active Substance: OMEPRAZOLE
     Dosage: 20 MG, UNK
     Route: 048
     Dates: start: 20130111
  65. OMEPRAZOLE. [Suspect]
     Active Substance: OMEPRAZOLE
     Dosage: 20 MG, UNK
     Route: 048
     Dates: start: 20140604
  66. PRILOSEC OTC [Suspect]
     Active Substance: OMEPRAZOLE MAGNESIUM
     Dosage: UNK
     Route: 048
  67. VITAMIN D3 [Concomitant]
     Active Substance: CHOLECALCIFEROL
     Indication: VITAMIN SUPPLEMENTATION
     Dosage: UNK, FOR 3 YEARS
  68. PEPCID [Concomitant]
     Active Substance: FAMOTIDINE
     Dosage: UNK
  69. RALOXIFENE. [Concomitant]
     Active Substance: RALOXIFENE
     Indication: OSTEOPOROSIS
     Dosage: UNK
     Dates: start: 2017
  70. RALOXIFENE. [Concomitant]
     Active Substance: RALOXIFENE
     Indication: NEOPLASM PROPHYLAXIS
  71. ATENOLOL. [Concomitant]
     Active Substance: ATENOLOL
     Indication: BLOOD PRESSURE ABNORMAL
     Dosage: UNK, FOR 10 YEARS
  72. BISACODYL. [Concomitant]
     Active Substance: BISACODYL
  73. AMLODIPINE [Concomitant]
     Active Substance: AMLODIPINE BESYLATE
     Indication: HYPERTENSION
     Dosage: UNK
     Dates: start: 2014
  74. AMBIEN [Concomitant]
     Active Substance: ZOLPIDEM TARTRATE
     Indication: INSOMNIA
     Dosage: UNK
     Dates: start: 2004
  75. PARACETAMOL;PROPOXYPHENE [Concomitant]
     Dosage: UNK
     Dates: start: 2010
  76. NASONEX [Concomitant]
     Active Substance: MOMETASONE FUROATE
     Indication: HYPERSENSITIVITY
     Dosage: UNK
     Dates: start: 2008, end: 2009
  77. NAPROXEN. [Concomitant]
     Active Substance: NAPROXEN
     Indication: INFLAMMATION
     Dosage: UNK
     Dates: start: 2009, end: 2010
  78. HYDRALAZINE [Concomitant]
     Active Substance: HYDRALAZINE HYDROCHLORIDE
     Indication: HYPERTENSION
     Dosage: UNK
     Route: 065
  79. PREVACID [Suspect]
     Active Substance: LANSOPRAZOLE
     Dosage: 30 MG, UNK
     Route: 048
     Dates: start: 20030717
  80. PREVACID [Suspect]
     Active Substance: LANSOPRAZOLE
     Dosage: UNK
     Route: 048
     Dates: start: 200602, end: 200603
  81. PREVACID [Suspect]
     Active Substance: LANSOPRAZOLE
     Dosage: UNK
     Route: 048
     Dates: start: 200709, end: 200801
  82. NEXIUM [Suspect]
     Active Substance: ESOMEPRAZOLE MAGNESIUM
     Dosage: UNK
     Route: 048
  83. OMEPRAZOLE. [Suspect]
     Active Substance: OMEPRAZOLE
     Dosage: 20 MG, UNK
     Dates: start: 20090519
  84. OMEPRAZOLE. [Suspect]
     Active Substance: OMEPRAZOLE
     Dosage: 20 MG, UNK
     Route: 048
     Dates: start: 20121120
  85. OMEPRAZOLE. [Suspect]
     Active Substance: OMEPRAZOLE
     Dosage: 20 MG, UNK
     Route: 048
     Dates: start: 20130816
  86. OMEPRAZOLE. [Suspect]
     Active Substance: OMEPRAZOLE
     Dosage: 20 MG, UNK
     Route: 048
     Dates: start: 20150527
  87. METOPROLOL. [Concomitant]
     Active Substance: METOPROLOL
     Indication: HYPERTENSION
  88. ATENOLOL. [Concomitant]
     Active Substance: ATENOLOL
     Dosage: UNK
     Dates: start: 20110816, end: 20110901
  89. POTASSIUM [Concomitant]
     Active Substance: POTASSIUM
     Indication: BLOOD POTASSIUM DECREASED
     Dosage: UNK, FOR 10 YEARS
  90. ZANTAC 150 (RANITIDINE HYDROCHLORIDE) [Concomitant]
     Active Substance: RANITIDINE HYDROCHLORIDE
     Dosage: UNK
     Dates: start: 1983, end: 1986
  91. APRESOLINE HYDROCHLORIDE [Concomitant]
     Active Substance: HYDRALAZINE HYDROCHLORIDE
  92. CLINDAMYCIN HCL [Concomitant]
     Active Substance: CLINDAMYCIN HYDROCHLORIDE
  93. CIPROFLOXACIN. [Concomitant]
     Active Substance: CIPROFLOXACIN
     Dosage: UNK
     Dates: start: 2012
  94. NITROFURANTOIN. [Concomitant]
     Active Substance: NITROFURANTOIN
     Indication: ANTIBIOTIC THERAPY
     Dosage: UNK
     Dates: start: 2009
  95. POTASSIUM CHLORIDE. [Concomitant]
     Active Substance: POTASSIUM CHLORIDE
     Dosage: UNK
  96. NABUMETONE. [Concomitant]
     Active Substance: NABUMETONE
     Indication: PAIN
     Dosage: UNK
     Dates: start: 2006
  97. AVELOX [Concomitant]
     Active Substance: MOXIFLOXACIN HYDROCHLORIDE
     Indication: ANTIBIOTIC THERAPY
     Dosage: UNK
     Dates: start: 2006
  98. APIXABAN [Concomitant]
     Active Substance: APIXABAN
     Dosage: UNK
  99. PREVACID [Suspect]
     Active Substance: LANSOPRAZOLE
     Dosage: 30 MG, UNK
     Route: 048
     Dates: start: 20030903
  100. PROTONIX [Suspect]
     Active Substance: PANTOPRAZOLE SODIUM
     Dosage: UNK
     Route: 048
     Dates: start: 200602, end: 200603
  101. PROTONIX [Suspect]
     Active Substance: PANTOPRAZOLE SODIUM
     Dosage: UNK
     Route: 048
     Dates: start: 200709, end: 200801
  102. NEXIUM 24HR [Suspect]
     Active Substance: ESOMEPRAZOLE MAGNESIUM
     Indication: GASTROOESOPHAGEAL REFLUX DISEASE
     Dosage: UNK
     Route: 048
  103. OMEPRAZOLE. [Suspect]
     Active Substance: OMEPRAZOLE
     Dosage: 20 MG, UNK
     Dates: start: 20090408
  104. OMEPRAZOLE. [Suspect]
     Active Substance: OMEPRAZOLE
     Dosage: 20 MG, UNK
     Route: 048
     Dates: start: 20090827
  105. OMEPRAZOLE. [Suspect]
     Active Substance: OMEPRAZOLE
     Dosage: 20 MG, UNK
     Route: 048
     Dates: start: 20150808
  106. TRAMADOL. [Concomitant]
     Active Substance: TRAMADOL
     Indication: PAIN
     Dosage: UNK
     Dates: start: 2012, end: 2013
  107. CIPROFLOXACIN. [Concomitant]
     Active Substance: CIPROFLOXACIN
     Dosage: UNK
     Dates: start: 2015
  108. LISINOPRIL/HYDROCHLOORTHIAZIDE [Concomitant]
     Active Substance: HYDROCHLOROTHIAZIDE\LISINOPRIL
     Indication: HYPERTENSION
     Dosage: UNK
     Dates: start: 2014, end: 2015
  109. NITROFURANTOIN. [Concomitant]
     Active Substance: NITROFURANTOIN
     Dosage: UNK
     Dates: start: 2015
  110. POTASSIUM CHLORIDE. [Concomitant]
     Active Substance: POTASSIUM CHLORIDE
     Indication: SUPPLEMENTATION THERAPY
     Dosage: UNK
     Dates: start: 2008, end: 2011
  111. ULTRACET [Concomitant]
     Active Substance: ACETAMINOPHEN\TRAMADOL HYDROCHLORIDE
     Indication: PAIN
     Dosage: UNK
     Dates: start: 2004
  112. TOPROL XL [Concomitant]
     Active Substance: METOPROLOL SUCCINATE
     Indication: HYPERTENSION
     Dosage: UNK
     Dates: start: 2006
  113. SKELAXIN [Concomitant]
     Active Substance: METAXALONE
     Indication: MUSCLE RELAXANT THERAPY
     Dosage: UNK
     Dates: start: 2006
  114. FLUCONAZOLE. [Concomitant]
     Active Substance: FLUCONAZOLE
     Indication: ANTIFUNGAL TREATMENT
     Dosage: UNK
     Dates: start: 2010
  115. DILTIAZEM. [Concomitant]
     Active Substance: DILTIAZEM
     Dosage: UNK
  116. HYDROCHLOROTHIAZIDE. [Concomitant]
     Active Substance: HYDROCHLOROTHIAZIDE
     Dosage: UNK
     Route: 065
  117. PREVACID [Suspect]
     Active Substance: LANSOPRAZOLE
     Dosage: 30 MG, UNK
     Route: 048
     Dates: start: 20030308
  118. PREVACID [Suspect]
     Active Substance: LANSOPRAZOLE
     Dosage: 30 MG, UNK
     Route: 048
     Dates: start: 20071025
  119. NEXIUM [Suspect]
     Active Substance: ESOMEPRAZOLE MAGNESIUM
     Indication: GASTROOESOPHAGEAL REFLUX DISEASE
     Dosage: UNK, DAILY
     Route: 048
     Dates: start: 2010
  120. OMEPRAZOLE. [Suspect]
     Active Substance: OMEPRAZOLE
     Indication: GASTROOESOPHAGEAL REFLUX DISEASE
     Dosage: 20 MG, UNK
     Dates: start: 20090220
  121. OMEPRAZOLE. [Suspect]
     Active Substance: OMEPRAZOLE
     Dosage: 20 MG, UNK
     Route: 048
     Dates: start: 20100118
  122. OMEPRAZOLE. [Suspect]
     Active Substance: OMEPRAZOLE
     Dosage: 20 MG, UNK
     Route: 048
     Dates: start: 20120118
  123. OMEPRAZOLE. [Suspect]
     Active Substance: OMEPRAZOLE
     Dosage: 20 MG, UNK
     Dates: start: 20120215
  124. OMEPRAZOLE. [Suspect]
     Active Substance: OMEPRAZOLE
     Dosage: 20 MG, UNK
     Route: 048
     Dates: start: 20150429
  125. OMEPRAZOLE. [Suspect]
     Active Substance: OMEPRAZOLE
     Dosage: 20 MG, UNK
     Route: 048
     Dates: start: 20150514
  126. MAGNESIUM [Concomitant]
     Active Substance: MAGNESIUM
     Indication: BLOOD MAGNESIUM DECREASED
     Dosage: UNK, ON AND OFF SINCE 2011
     Dates: start: 2011
  127. SPIRONOLACTONE. [Concomitant]
     Active Substance: SPIRONOLACTONE
     Indication: BLOOD PRESSURE ABNORMAL
     Dosage: UNK, FOR 3 YEARS
     Dates: start: 2015
  128. LASIX [Concomitant]
     Active Substance: FUROSEMIDE
     Indication: FLUID RETENTION
     Dosage: UNK, FOR 10 YEARS
  129. SIMVASTATIN. [Concomitant]
     Active Substance: SIMVASTATIN
     Indication: BLOOD CHOLESTEROL ABNORMAL
     Dosage: UNK
     Dates: start: 2008, end: 2014
  130. CHOLECALCIFEROL [Concomitant]
     Active Substance: CHOLECALCIFEROL
  131. CYCLOBENZAPRINE. [Concomitant]
     Active Substance: CYCLOBENZAPRINE
     Dosage: UNK
     Dates: start: 20111011
  132. K?TAB [Concomitant]
     Active Substance: POTASSIUM CHLORIDE
     Indication: BLOOD POTASSIUM ABNORMAL
     Dosage: UNK
     Dates: start: 2000, end: 2014
  133. BENZONATATE. [Concomitant]
     Active Substance: BENZONATATE
     Indication: COUGH
     Dosage: UNK
     Dates: start: 2012
  134. TRIMETHOPRIM. [Concomitant]
     Active Substance: TRIMETHOPRIM
     Indication: ANTIBIOTIC THERAPY
     Dosage: UNK
     Dates: start: 2012
  135. HYDROCORTISONE/NEOMYCIN/POLYMYXIN B [Concomitant]
     Active Substance: HYDROCORTISONE\NEOMYCIN SULFATE\POLYMYXIN B SULFATE
     Indication: ANTIBIOTIC THERAPY
     Dosage: UNK
     Dates: start: 2006
  136. AZITHROMYCIN ANHYDROUS. [Concomitant]
     Active Substance: AZITHROMYCIN ANHYDROUS
     Dosage: UNK
     Dates: start: 2011
  137. ULORIC [Concomitant]
     Active Substance: FEBUXOSTAT
     Indication: BLOOD URIC ACID INCREASED
     Dosage: UNK
     Dates: start: 2009
  138. ERYCEITE [Concomitant]
     Dosage: UNK
  139. ROSUVASTATIN. [Concomitant]
     Active Substance: ROSUVASTATIN
     Dosage: UNK
  140. PREVACID [Suspect]
     Active Substance: LANSOPRAZOLE
     Indication: GASTROOESOPHAGEAL REFLUX DISEASE
     Dosage: UNK
     Route: 048
     Dates: start: 200303, end: 200407
  141. PROTONIX [Suspect]
     Active Substance: PANTOPRAZOLE SODIUM
     Indication: GASTROOESOPHAGEAL REFLUX DISEASE
     Dosage: UNK
     Route: 048
     Dates: start: 200303, end: 200407
  142. OMEPRAZOLE. [Suspect]
     Active Substance: OMEPRAZOLE
     Dosage: 20 MG, UNK
     Route: 048
     Dates: start: 20110224
  143. OMEPRAZOLE. [Suspect]
     Active Substance: OMEPRAZOLE
     Dosage: 20 MG, UNK
     Route: 048
     Dates: start: 20120409
  144. OMEPRAZOLE. [Suspect]
     Active Substance: OMEPRAZOLE
     Dosage: 20 MG, UNK
     Route: 048
     Dates: start: 20140122
  145. OMEPRAZOLE. [Suspect]
     Active Substance: OMEPRAZOLE
     Dosage: 20 MG, UNK
     Dates: start: 20151027
  146. CARTIA [Concomitant]
     Indication: BLOOD PRESSURE ABNORMAL
     Dosage: UNK, FOR 3 YEARS
  147. ASPIRIN. [Concomitant]
     Active Substance: ASPIRIN
  148. FLUTICASONE. [Concomitant]
     Active Substance: FLUTICASONE
     Dosage: UNK
     Dates: start: 2014
  149. CIPROFLOXACIN. [Concomitant]
     Active Substance: CIPROFLOXACIN
     Indication: ANTIBIOTIC THERAPY
     Dosage: UNK
     Dates: start: 2006, end: 2009
  150. CLINDAMYCIN. [Concomitant]
     Active Substance: CLINDAMYCIN
     Indication: ANTIBIOTIC THERAPY
     Dosage: UNK
     Dates: start: 2013
  151. KLOR?CON [Concomitant]
     Active Substance: POTASSIUM CHLORIDE
     Indication: MINERAL SUPPLEMENTATION
     Dosage: UNK
     Dates: start: 1999, end: 2008
  152. GFN/DM [Concomitant]
     Indication: NASOPHARYNGITIS
     Dosage: UNK
     Dates: start: 2004
  153. COLCHICINE. [Concomitant]
     Active Substance: COLCHICINE
     Dosage: UNK
     Dates: start: 2009, end: 2010
  154. AZITHROMYCIN ANHYDROUS. [Concomitant]
     Active Substance: AZITHROMYCIN ANHYDROUS
     Indication: ANTIBIOTIC THERAPY
     Dosage: UNK
     Dates: start: 2006, end: 2008
  155. HYOSCYAMINE. [Concomitant]
     Active Substance: HYOSCYAMINE
     Indication: MUSCLE SPASMS
     Dosage: UNK
     Dates: start: 2007
  156. ZYRTEC [Concomitant]
     Active Substance: CETIRIZINE HYDROCHLORIDE
     Indication: HYPERSENSITIVITY
     Dosage: UNK
     Dates: start: 2007
  157. NYSTOP [Concomitant]
     Active Substance: NYSTATIN
     Indication: ANTIFUNGAL TREATMENT
     Dosage: UNK
     Route: 061
     Dates: start: 2010
  158. MISOPROSTOL. [Concomitant]
     Active Substance: MISOPROSTOL
     Dosage: UNK
  159. OMEGA 3 [Concomitant]
     Active Substance: OMEGA-3 FATTY ACIDS
     Dosage: UNK
     Route: 065
     Dates: start: 20110816

REACTIONS (4)
  - Chronic kidney disease [Unknown]
  - Nephropathy [Not Recovered/Not Resolved]
  - Renal impairment [Not Recovered/Not Resolved]
  - Renal failure [Unknown]

NARRATIVE: CASE EVENT DATE: 2011
